FAERS Safety Report 8124401-3 (Version None)
Quarter: 2012Q1

REPORT INFORMATION
  Report Type: 
  Country: None (occurrence: None)
  Receive Date: 20120209
  Receipt Date: 20120203
  Transmission Date: 20120608
  Serious: Yes (Other)
  Sender: FDA-Public Use
  Company Number: US-JNJFOC-20120202608

PATIENT
  Age: 74 Year
  Sex: Female
  Weight: 59.42 kg

DRUGS (10)
  1. IMODIUM A-D [Suspect]
     Indication: DIARRHOEA
     Route: 048
  2. IMODIUM A-D [Suspect]
     Dosage: EVERY OTHER DAY
     Route: 048
  3. IMODIUM A-D [Suspect]
     Route: 048
  4. ANTACID [Concomitant]
     Indication: GASTRIC DISORDER
     Route: 065
  5. ANTI HYPERTENSIVE NOS [Concomitant]
     Indication: HYPERTENSION
     Route: 065
  6. CALCIUM [Concomitant]
     Indication: VITAMIN SUPPLEMENTATION
     Route: 065
  7. IMODIUM A-D [Suspect]
     Indication: DYSPEPSIA
     Dosage: EVERY OTHER DAY
     Route: 048
  8. MULTI-VITAMINS [Concomitant]
     Indication: VITAMIN SUPPLEMENTATION
     Route: 065
  9. LACTAID [Concomitant]
     Indication: LACTOSE INTOLERANCE
     Dosage: 1-2 BEFORE MEALS
     Route: 065
     Dates: start: 20110101
  10. CHOLESTEROL DRUG, NOS [Concomitant]
     Indication: BLOOD CHOLESTEROL INCREASED
     Route: 065

REACTIONS (2)
  - RENAL IMPAIRMENT [None]
  - DRUG INEFFECTIVE [None]
